FAERS Safety Report 10016761 (Version 1)
Quarter: 2014Q1

REPORT INFORMATION
  Report Type: Spontaneous
  Country: AT (occurrence: AT)
  Receive Date: 20140318
  Receipt Date: 20140318
  Transmission Date: 20141002
  Serious: Yes (Other)
  Sender: FDA-Public Use
  Company Number: PHHY2014AT025822

PATIENT
  Sex: Male

DRUGS (2)
  1. TASIGNA [Suspect]
     Indication: CHRONIC MYELOID LEUKAEMIA
     Dosage: 200 MG, BID
     Dates: start: 201310, end: 20131230
  2. TASIGNA [Suspect]
     Dosage: 200 MG, QD
     Dates: start: 20131231, end: 20140129

REACTIONS (1)
  - Delirium [Unknown]
